FAERS Safety Report 13995784 (Version 1)
Quarter: 2017Q3

REPORT INFORMATION
  Report Type: Spontaneous
  Country: US (occurrence: US)
  Receive Date: 20170921
  Receipt Date: 20170921
  Transmission Date: 20171128
  Serious: Yes (Hospitalization)
  Sender: FDA-Public Use
  Company Number: PHHY2017US136322

PATIENT
  Age: 21 Year
  Sex: Female

DRUGS (6)
  1. PROPRANOLOL [Suspect]
     Active Substance: PROPRANOLOL HYDROCHLORIDE
     Indication: HYPERTHYROIDISM
     Dosage: 20 MG, UNK
     Route: 065
  2. THIAMAZOLE [Suspect]
     Active Substance: METHIMAZOLE
     Dosage: 5 MG, QD
     Route: 065
  3. THIAMAZOLE [Suspect]
     Active Substance: METHIMAZOLE
     Dosage: 10 MG,
     Route: 065
  4. LEVOTHYROXINE. [Concomitant]
     Active Substance: LEVOTHYROXINE
     Dosage: 75 UG, QD
     Route: 065
  5. LEVOTHYROXINE. [Concomitant]
     Active Substance: LEVOTHYROXINE
     Indication: THYROXINE FREE DECREASED
     Dosage: 100 UG, UNK
     Route: 065
  6. THIAMAZOLE [Suspect]
     Active Substance: METHIMAZOLE
     Indication: HYPERTHYROIDISM
     Dosage: 60 MG, UNK
     Route: 065

REACTIONS (6)
  - Antiacetylcholine receptor antibody positive [Recovering/Resolving]
  - Dysphagia [Not Recovered/Not Resolved]
  - Myasthenia gravis [Recovering/Resolving]
  - Dysphonia [Recovering/Resolving]
  - Salivary hypersecretion [Recovering/Resolving]
  - Asthenia [Recovering/Resolving]
